FAERS Safety Report 15452365 (Version 1)
Quarter: 2018Q4

REPORT INFORMATION
  Report Type: Spontaneous
  Country: AR (occurrence: AR)
  Receive Date: 20181001
  Receipt Date: 20181001
  Transmission Date: 20190204
  Serious: Yes (Other)
  Sender: FDA-Public Use
  Company Number: AR-009507513-1805ARG001587

PATIENT
  Age: 55 Year
  Sex: Female

DRUGS (3)
  1. KEYTRUDA [Suspect]
     Active Substance: PEMBROLIZUMAB
     Indication: METASTATIC MALIGNANT MELANOMA
     Dosage: UNK UNK, CYCLICAL
     Dates: end: 2018
  2. T4 [Concomitant]
     Active Substance: LEVOTHYROXINE
     Indication: HYPOTHYROIDISM
  3. KEYTRUDA [Suspect]
     Active Substance: PEMBROLIZUMAB
     Dosage: UNK
     Dates: start: 20180917

REACTIONS (12)
  - Oral disorder [Recovering/Resolving]
  - Rash pruritic [Recovering/Resolving]
  - Therapy partial responder [Unknown]
  - Skin disorder [Recovered/Resolved]
  - Malaise [Unknown]
  - Dermatitis bullous [Recovering/Resolving]
  - Parotid gland enlargement [Not Recovered/Not Resolved]
  - Rash maculo-papular [Recovering/Resolving]
  - Immune-mediated adverse reaction [Unknown]
  - Skin lesion [Recovering/Resolving]
  - Myalgia [Unknown]
  - Arthralgia [Unknown]

NARRATIVE: CASE EVENT DATE: 2018
